FAERS Safety Report 5290620-7 (Version None)
Quarter: 2007Q2

REPORT INFORMATION
  Report Type: 
  Country: None (occurrence: None)
  Receive Date: 20070409
  Receipt Date: 20070404
  Transmission Date: 20071010
  Serious: Yes (Death)
  Sender: FDA-Public Use
  Company Number: FR-BRISTOL-MYERS SQUIBB COMPANY-13741251

PATIENT
  Age: 95 Year
  Sex: Female

DRUGS (15)
  1. FOZITEC [Suspect]
     Route: 048
  2. ALDACTONE [Suspect]
     Route: 048
  3. COLCHIMAX [Suspect]
     Route: 048
  4. ALLOPURINOL [Suspect]
     Route: 048
  5. LASIX [Suspect]
     Route: 048
  6. AVANDIA [Suspect]
     Route: 048
  7. ADANCOR [Concomitant]
     Route: 048
  8. KARDEGIC [Concomitant]
     Route: 048
  9. CARDENSIEL [Concomitant]
     Route: 048
  10. PARIET [Concomitant]
     Route: 048
  11. STABLON [Concomitant]
     Route: 048
  12. ALPRAZOLAM [Concomitant]
     Route: 048
  13. ZOLPIDEM [Concomitant]
     Route: 048
  14. ALUMINUM HYDROXIDE AND MAGNESIUM TRISILICATE [Concomitant]
     Route: 048
  15. ARESTAL [Concomitant]
     Route: 048

REACTIONS (1)
  - RENAL FAILURE ACUTE [None]
